FAERS Safety Report 8489717-X (Version None)
Quarter: 2012Q3

REPORT INFORMATION
  Report Type: 
  Country: None (occurrence: None)
  Receive Date: 20120705
  Receipt Date: 20120618
  Transmission Date: 20120928
  Serious: Yes (Other)
  Sender: FDA-Public Use
  Company Number: BE-GLAXOSMITHKLINE-B0805208A

PATIENT
  Sex: Female
  Weight: 61 kg

DRUGS (4)
  1. POTIGA [Suspect]
     Indication: TEMPORAL LOBE EPILEPSY
     Dosage: 400MG THREE TIMES PER DAY
     Route: 065
     Dates: start: 20120522
  2. LAMICTAL [Concomitant]
     Dosage: 100MG TWICE PER DAY
  3. TOPAMAX [Concomitant]
  4. DEPAKENE [Concomitant]

REACTIONS (15)
  - HALLUCINATION [None]
  - APHASIA [None]
  - DISTURBANCE IN ATTENTION [None]
  - ATAXIA [None]
  - AMNESIA [None]
  - MYOCLONUS [None]
  - DYSARTHRIA [None]
  - TIC [None]
  - VISUAL IMPAIRMENT [None]
  - NAUSEA [None]
  - COORDINATION ABNORMAL [None]
  - LYMPHATIC DISORDER [None]
  - MEMORY IMPAIRMENT [None]
  - SOMNOLENCE [None]
  - BALANCE DISORDER [None]
